FAERS Safety Report 7977937-X (Version None)
Quarter: 2011Q4

REPORT INFORMATION
  Report Type: 
  Country: None (occurrence: None)
  Receive Date: 20111214
  Receipt Date: 20111205
  Transmission Date: 20120403
  Serious: Yes (Hospitalization)
  Sender: FDA-Public Use
  Company Number: US-BIOGENIDEC-2011BI046163

PATIENT
  Age: 51 Year
  Sex: Female

DRUGS (2)
  1. AVONEX [Suspect]
     Route: 030
     Dates: start: 20030801
  2. AVONEX [Suspect]
     Indication: MULTIPLE SCLEROSIS
     Route: 030
     Dates: start: 19970119, end: 20030801

REACTIONS (10)
  - SHOULDER ARTHROPLASTY [None]
  - JOINT RANGE OF MOTION DECREASED [None]
  - TENDONITIS [None]
  - BONE DISORDER [None]
  - MUSCULAR WEAKNESS [None]
  - INJECTION SITE ERYTHEMA [None]
  - LIGAMENT LAXITY [None]
  - TENDON RUPTURE [None]
  - INJECTION SITE INDURATION [None]
  - CHONDROPATHY [None]
